FAERS Safety Report 17812397 (Version 1)
Quarter: 2020Q2

REPORT INFORMATION
  Report Type: Spontaneous
  Country: US (occurrence: US)
  Receive Date: 20200521
  Receipt Date: 20200521
  Transmission Date: 20200714
  Serious: No
  Sender: FDA-Public Use
  Company Number: US-COHERUS BIOSCIENCES, INC-2020US002027

PATIENT

DRUGS (5)
  1. UDENYCA [Suspect]
     Active Substance: PEGFILGRASTIM-CBQV
     Dosage: 4 MG
     Route: 058
     Dates: start: 20200330
  2. CBD OIL [Concomitant]
     Active Substance: CANNABIDIOL\HERBALS
     Indication: INSOMNIA
     Dosage: UNK
  3. DECITABINE. [Concomitant]
     Active Substance: DECITABINE
     Dosage: UNK
     Dates: start: 20200323, end: 20200327
  4. UDENYCA [Suspect]
     Active Substance: PEGFILGRASTIM-CBQV
     Indication: WHITE BLOOD CELL COUNT DECREASED
     Dosage: 6 MG
     Route: 058
     Dates: start: 202002
  5. DECITABINE. [Concomitant]
     Active Substance: DECITABINE
     Indication: NEOPLASM
     Dosage: UNK, DAILY FOR 5 DAYS FOLLOWED BY 4 WEEKS OFF

REACTIONS (4)
  - Gastrointestinal pain [Recovered/Resolved]
  - Nephrolithiasis [Unknown]
  - Incorrect dose administered [Unknown]
  - Blood urine [Recovered/Resolved]

NARRATIVE: CASE EVENT DATE: 202002
